FAERS Safety Report 19209358 (Version 2)
Quarter: 2021Q2

REPORT INFORMATION
  Report Type: Report from Study
  Country: US (occurrence: US)
  Receive Date: 20210504
  Receipt Date: 20210528
  Transmission Date: 20210717
  Serious: No
  Sender: FDA-Public Use
  Company Number: US-ACADIA PHARMACEUTICALS INC.-ACA-2021-PIM-001355

PATIENT
  Age: 75 Year
  Sex: Female
  Weight: 60 kg

DRUGS (14)
  1. MEMANTINE. [Concomitant]
     Active Substance: MEMANTINE
  2. FLUOXETINE HCL [Concomitant]
     Active Substance: FLUOXETINE HYDROCHLORIDE
  3. ATORVASTATIN [Concomitant]
     Active Substance: ATORVASTATIN
  4. VITAMIN D2 [Concomitant]
     Active Substance: ERGOCALCIFEROL
  5. DONEPEZIL. [Concomitant]
     Active Substance: DONEPEZIL
  6. FLUOXETINE [Concomitant]
     Active Substance: FLUOXETINE HYDROCHLORIDE
  7. NUPLAZID [Suspect]
     Active Substance: PIMAVANSERIN TARTRATE
     Indication: PARKINSON^S DISEASE
     Dosage: 34 MILLIGRAM, QD
     Route: 048
     Dates: start: 202103
  8. SEROQUEL [Concomitant]
     Active Substance: QUETIAPINE FUMARATE
  9. GALANTAMINE HBR [Concomitant]
     Active Substance: GALANTAMINE HYDROBROMIDE
  10. BOTOX [Concomitant]
     Active Substance: ONABOTULINUMTOXINA
     Dosage: INJECTION MONTHLY
  11. CARBIDOPA/LEVODOPA [Concomitant]
     Active Substance: CARBIDOPA\LEVODOPA
  12. NUPLAZID [Suspect]
     Active Substance: PIMAVANSERIN TARTRATE
     Indication: HALLUCINATION
  13. NAMENDA [Concomitant]
     Active Substance: MEMANTINE HYDROCHLORIDE
  14. NUPLAZID [Suspect]
     Active Substance: PIMAVANSERIN TARTRATE
     Indication: DELUSION

REACTIONS (7)
  - Delusion [Unknown]
  - Drug ineffective [Unknown]
  - Aggression [Unknown]
  - Hallucination [Unknown]
  - Screaming [Unknown]
  - Crying [Unknown]
  - Psychotic disorder [Unknown]

NARRATIVE: CASE EVENT DATE: 20210504
